FAERS Safety Report 18511567 (Version 3)
Quarter: 2021Q1

REPORT INFORMATION
  Report Type: Report from Study
  Country: US (occurrence: US)
  Receive Date: 20201117
  Receipt Date: 20210303
  Transmission Date: 20210419
  Serious: Yes (Hospitalization)
  Sender: FDA-Public Use
  Company Number: US-BIOGEN-2020BI00941900

PATIENT
  Age: 61 Year
  Sex: Female

DRUGS (2)
  1. LAMICTAL [Suspect]
     Active Substance: LAMOTRIGINE
     Indication: PRODUCT USED FOR UNKNOWN INDICATION
     Route: 065
  2. TYSABRI [Suspect]
     Active Substance: NATALIZUMAB
     Indication: MULTIPLE SCLEROSIS
     Route: 065
     Dates: start: 20111219, end: 20200915

REACTIONS (7)
  - Stomatitis [Unknown]
  - Respiratory arrest [Unknown]
  - Partial seizures [Unknown]
  - Motor dysfunction [Unknown]
  - Choking [Unknown]
  - Generalised tonic-clonic seizure [Unknown]
  - Dry mouth [Unknown]

NARRATIVE: CASE EVENT DATE: 202008
